FAERS Safety Report 6508026-9 (Version None)
Quarter: 2009Q4

REPORT INFORMATION
  Report Type: 
  Country: None (occurrence: None)
  Receive Date: 20091210
  Receipt Date: 20090421
  Transmission Date: 20100525
  Serious: Yes (Other)
  Sender: FDA-Public Use
  Company Number: CIP07001370

PATIENT
  Sex: Female

DRUGS (8)
  1. ACTONEL [Suspect]
     Indication: OSTEOPOROSIS
     Dosage: 5 MG DAILY, ORAL
     Route: 048
     Dates: start: 20000903
  2. ACTONEL [Suspect]
     Indication: OSTEOPOROSIS
     Dosage: 30 MG ONCE WEEKLY, ORAL
     Route: 048
     Dates: start: 20000228
  3. BONIVA [Suspect]
     Dosage: 150 MG, 1 /MONTH
     Dates: start: 20060223
  4. ZOLOFT [Concomitant]
  5. PROMETRIUM [Concomitant]
  6. ESCLIM [Concomitant]
  7. ERGOCALCIFEROL [Concomitant]
  8. CYMBALTA [Concomitant]

REACTIONS (15)
  - BONE DISORDER [None]
  - CYANOSIS [None]
  - DENTAL CARIES [None]
  - DENTAL NECROSIS [None]
  - JAW DISORDER [None]
  - LOOSE TOOTH [None]
  - ORAL DISCHARGE [None]
  - OSTEONECROSIS [None]
  - PULPITIS DENTAL [None]
  - RESORPTION BONE INCREASED [None]
  - SENSITIVITY OF TEETH [None]
  - TOOTH ABSCESS [None]
  - TOOTH DISORDER [None]
  - TOOTH FRACTURE [None]
  - TOOTHACHE [None]
